FAERS Safety Report 24008475 (Version 3)
Quarter: 2024Q3

REPORT INFORMATION
  Report Type: Spontaneous
  Country: US (occurrence: US)
  Receive Date: 20240625
  Receipt Date: 20240827
  Transmission Date: 20241017
  Serious: Yes (Other)
  Sender: CELLTRION
  Company Number: US-CELLTRION INC.-2024US014802

PATIENT

DRUGS (2)
  1. INFLECTRA [Suspect]
     Active Substance: INFLIXIMAB-DYYB
     Indication: Pneumonitis
     Dosage: DOSE BASED ON BODY WEIGHT. UNKNOWN DOSE, RECEIVED EVERY 2 WEEKS
     Route: 065
     Dates: start: 20240517, end: 20240603
  2. BENADRYL [Concomitant]
     Active Substance: DIPHENHYDRAMINE HYDROCHLORIDE
     Indication: Premedication

REACTIONS (36)
  - Hypothermia [Not Recovered/Not Resolved]
  - Pneumonitis [Unknown]
  - Condition aggravated [Unknown]
  - Dizziness postural [Not Recovered/Not Resolved]
  - Polyuria [Not Recovered/Not Resolved]
  - Micturition urgency [Not Recovered/Not Resolved]
  - Dysphonia [Not Recovered/Not Resolved]
  - Sneezing [Not Recovered/Not Resolved]
  - Dry mouth [Not Recovered/Not Resolved]
  - Thirst [Not Recovered/Not Resolved]
  - Musculoskeletal disorder [Not Recovered/Not Resolved]
  - Ill-defined disorder [Unknown]
  - Loss of personal independence in daily activities [Not Recovered/Not Resolved]
  - Dehydration [Not Recovered/Not Resolved]
  - Malaise [Not Recovered/Not Resolved]
  - Adverse reaction [Not Recovered/Not Resolved]
  - Pain [Not Recovered/Not Resolved]
  - Chest pain [Not Recovered/Not Resolved]
  - Chest discomfort [Not Recovered/Not Resolved]
  - Chills [Not Recovered/Not Resolved]
  - Cough [Not Recovered/Not Resolved]
  - Headache [Not Recovered/Not Resolved]
  - Myalgia [Unknown]
  - Peripheral swelling [Not Recovered/Not Resolved]
  - Hypersensitivity [Not Recovered/Not Resolved]
  - Hypoaesthesia [Not Recovered/Not Resolved]
  - Skin disorder [Not Recovered/Not Resolved]
  - Weight decreased [Not Recovered/Not Resolved]
  - Nervous system disorder [Not Recovered/Not Resolved]
  - Respiratory disorder [Not Recovered/Not Resolved]
  - Hyperhidrosis [Not Recovered/Not Resolved]
  - Dyspnoea [Not Recovered/Not Resolved]
  - Nasopharyngitis [Not Recovered/Not Resolved]
  - Fatigue [Not Recovered/Not Resolved]
  - Off label use [Unknown]
  - Drug ineffective for unapproved indication [Unknown]

NARRATIVE: CASE EVENT DATE: 20240101
